FAERS Safety Report 5081755-2 (Version None)
Quarter: 2006Q3

REPORT INFORMATION
  Report Type: 
  Country: None (occurrence: None)
  Receive Date: 20060816
  Receipt Date: 20060804
  Transmission Date: 20061208
  Serious: Yes (Congenital Anomaly)
  Sender: FDA-Public Use
  Company Number: US-ROCHE-458391

PATIENT
  Sex: Male
  Weight: 3.1 kg

DRUGS (3)
  1. INVIRASE [Suspect]
     Dates: start: 20050912, end: 20051225
  2. COMBIVIR [Suspect]
     Dates: start: 20050912, end: 20051225
  3. NORVIR [Suspect]
     Dates: start: 20050912, end: 20051225

REACTIONS (2)
  - CLEFT PALATE [None]
  - DRUG EXPOSURE DURING PREGNANCY [None]
